FAERS Safety Report 20605832 (Version 2)
Quarter: 2022Q2

REPORT INFORMATION
  Report Type: Report from Study
  Country: CA (occurrence: CA)
  Receive Date: 20220317
  Receipt Date: 20220406
  Transmission Date: 20220721
  Serious: Yes (Other)
  Sender: FDA-Public Use
  Company Number: CA-KYOWAKIRIN-2022BKK002282

PATIENT

DRUGS (9)
  1. CRYSVITA [Suspect]
     Active Substance: BUROSUMAB-TWZA
     Indication: Hereditary hypophosphataemic rickets
     Dosage: 30 MG, Q 2 WEEKS
     Route: 058
     Dates: start: 20220209, end: 20220209
  2. CRYSVITA [Suspect]
     Active Substance: BUROSUMAB-TWZA
     Dosage: 40 MG / Q 2 WEEKS
     Route: 058
     Dates: start: 20220323
  3. CRYSVITA [Suspect]
     Active Substance: BUROSUMAB-TWZA
     Dosage: 40 MG / Q 2 WEEKS
     Route: 058
     Dates: start: 20220309, end: 20220309
  4. CRYSVITA [Suspect]
     Active Substance: BUROSUMAB-TWZA
     Dosage: 40 MG / Q 2 WEEKS
     Route: 058
     Dates: start: 20220223, end: 20220223
  5. CRYSVITA [Suspect]
     Active Substance: BUROSUMAB-TWZA
     Dosage: 30 MG, Q 2 WEEKS
     Route: 058
     Dates: start: 20210908, end: 202201
  6. CRYSVITA [Suspect]
     Active Substance: BUROSUMAB-TWZA
     Dosage: 20 MG, Q 2 WEEKS
     Route: 058
     Dates: start: 20200909, end: 20210825
  7. CRYSVITA [Suspect]
     Active Substance: BUROSUMAB-TWZA
     Dosage: 15 MG, Q 2 WEEKS
     Route: 058
     Dates: start: 20200826, end: 20200826
  8. CRYSVITA [Suspect]
     Active Substance: BUROSUMAB-TWZA
     Dosage: 10 MG, Q 2 WEEKS
     Route: 058
     Dates: start: 20200520, end: 20200812
  9. VITAMIN D NOS [Concomitant]
     Active Substance: VITAMIN D NOS
     Indication: Product used for unknown indication
     Dosage: UNK
     Route: 065

REACTIONS (5)
  - Congenital musculoskeletal disorder of skull [Unknown]
  - Knee deformity [Unknown]
  - Blood pressure diastolic decreased [Unknown]
  - Off label use [Unknown]
  - Therapy non-responder [Unknown]

NARRATIVE: CASE EVENT DATE: 20220223
